FAERS Safety Report 20515277 (Version 1)
Quarter: 2022Q1

REPORT INFORMATION
  Report Type: Report from Study
  Country: HN (occurrence: HN)
  Receive Date: 20220224
  Receipt Date: 20220224
  Transmission Date: 20220423
  Serious: Yes (Hospitalization)
  Sender: FDA-Public Use
  Company Number: HN-BIOGEN-2022BI01098926

PATIENT
  Age: 33 Year
  Sex: Female
  Weight: 54.55 kg

DRUGS (5)
  1. AVONEX [Suspect]
     Active Substance: INTERFERON BETA-1A
     Indication: Relapsing multiple sclerosis
     Route: 030
     Dates: start: 20210609
  2. AVONEX [Suspect]
     Active Substance: INTERFERON BETA-1A
  3. AVONEX [Suspect]
     Active Substance: INTERFERON BETA-1A
  4. AVONEX [Suspect]
     Active Substance: INTERFERON BETA-1A
  5. LYRICA [Concomitant]
     Active Substance: PREGABALIN
     Indication: Nerve injury
     Route: 065
     Dates: start: 2018

REACTIONS (4)
  - Micturition disorder [Recovered/Resolved]
  - Fluid retention [Recovered/Resolved]
  - Inflammation [Unknown]
  - Discomfort [Recovered/Resolved]

NARRATIVE: CASE EVENT DATE: 20220203
